FAERS Safety Report 6232424-4 (Version None)
Quarter: 2009Q2

REPORT INFORMATION
  Report Type: 
  Country: None (occurrence: None)
  Receive Date: 20090615
  Receipt Date: 20090601
  Transmission Date: 20091009
  Serious: No
  Sender: FDA-Public Use
  Company Number: TPA2009A00710

PATIENT
  Age: 50 Year
  Sex: Female
  Weight: 61.2356 kg

DRUGS (3)
  1. PREVPAC [Suspect]
     Indication: HELICOBACTER INFECTION
     Dosage: BID AS DIRECTED FOR 14 DAYS, PER ORAL
     Route: 048
     Dates: start: 20090420, end: 20090504
  2. KAPIDEX [Suspect]
     Indication: ULCER
     Dosage: 1 IN 1 D, PER ORAL
     Route: 048
     Dates: start: 20090420
  3. ALLEGRA [Concomitant]

REACTIONS (1)
  - VISION BLURRED [None]
